FAERS Safety Report 19956363 (Version 1)
Quarter: 2021Q4

REPORT INFORMATION
  Report Type: Spontaneous
  Country: FR (occurrence: FR)
  Receive Date: 20211014
  Receipt Date: 20211014
  Transmission Date: 20220303
  Serious: Yes (Death, Other)
  Sender: FDA-Public Use
  Company Number: FR-ABBVIE-21K-056-4119548-00

PATIENT
  Age: 36 Year
  Sex: Male

DRUGS (11)
  1. VALPROIC ACID [Suspect]
     Active Substance: VALPROIC ACID
     Indication: Product used for unknown indication
     Route: 065
  2. ARIPIPRAZOLE [Suspect]
     Active Substance: ARIPIPRAZOLE
     Indication: Product used for unknown indication
     Dosage: UNSPECIFIED
     Route: 048
  3. BACLOFEN [Suspect]
     Active Substance: BACLOFEN
     Indication: Product used for unknown indication
     Dosage: UNSPECIFIED
     Route: 048
  4. OXAZEPAM [Suspect]
     Active Substance: OXAZEPAM
     Indication: Product used for unknown indication
     Dosage: UNSPECIFIED
     Route: 048
  5. FLUOXETINE HYDROCHLORIDE [Suspect]
     Active Substance: FLUOXETINE HYDROCHLORIDE
     Indication: Product used for unknown indication
     Dosage: UNSPECIFIED
     Route: 065
  6. LORMETAZEPAM [Suspect]
     Active Substance: LORMETAZEPAM
     Indication: Product used for unknown indication
     Dosage: UNSPECIFIED
     Route: 065
  7. ALPRAZOLAM [Suspect]
     Active Substance: ALPRAZOLAM
     Indication: Product used for unknown indication
     Dosage: UNSPECIFIED
     Route: 048
  8. METHADONE HYDROCHLORIDE [Suspect]
     Active Substance: METHADONE HYDROCHLORIDE
     Indication: Product used for unknown indication
     Dosage: UNSPECIFIED
     Route: 048
  9. COCAINE [Suspect]
     Active Substance: COCAINE
     Indication: Drug abuse
     Dosage: UNSPECIFIED
     Route: 065
  10. HEROIN [Suspect]
     Active Substance: DIAMORPHINE
     Indication: Drug dependence
     Dosage: UNSPECIFIED
     Route: 065
  11. CANNABIS SATIVA SUBSP. INDICA TOP [Suspect]
     Active Substance: CANNABIS SATIVA SUBSP. INDICA TOP
     Indication: Drug abuse
     Dosage: UNSPECIFIED
     Route: 055

REACTIONS (2)
  - Asphyxia [Fatal]
  - Drug abuse [Fatal]
